FAERS Safety Report 25645880 (Version 1)
Quarter: 2025Q3

REPORT INFORMATION
  Report Type: Spontaneous
  Country: US (occurrence: None)
  Receive Date: 20250804
  Receipt Date: 20250804
  Transmission Date: 20251021
  Serious: No
  Sender: FDA-CTU
  Company Number: None

PATIENT
  Age: 46 Year
  Sex: Female
  Weight: 69.3 kg

DRUGS (5)
  1. SCOPOLAMINE TRANSDERMAL SYSTEM [Suspect]
     Active Substance: SCOPOLAMINE
     Indication: Motion sickness
     Dates: start: 20250714, end: 20250723
  2. SCOPOLAMINE TRANSDERMAL SYSTEM [Suspect]
     Active Substance: SCOPOLAMINE
     Indication: Prophylaxis
  3. Mesalamine 1.2gm Tablets (2 tablets) [Concomitant]
  4. Magnesium L-Threonate [Concomitant]
  5. Black elderberry gummies [Concomitant]

REACTIONS (2)
  - Mydriasis [None]
  - Diplopia [None]

NARRATIVE: CASE EVENT DATE: 20250715
